FAERS Safety Report 17509899 (Version 1)
Quarter: 2020Q1

REPORT INFORMATION
  Report Type: Spontaneous
  Country: CA (occurrence: CA)
  Receive Date: 20200306
  Receipt Date: 20200306
  Transmission Date: 20200409
  Serious: Yes (Death)
  Sender: FDA-Public Use
  Company Number: CA-ACTELION-A-CH2020-202635

PATIENT

DRUGS (1)
  1. UPTRAVI [Suspect]
     Active Substance: SELEXIPAG
     Indication: PULMONARY ARTERIAL HYPERTENSION
     Dosage: 22 TO 30 MCG/KG EVERY 12 HOURS
     Route: 048

REACTIONS (8)
  - Disease progression [Unknown]
  - Dizziness [Unknown]
  - Gastrointestinal disorder [Unknown]
  - Hypotension [Unknown]
  - Flushing [Unknown]
  - Death [Fatal]
  - Headache [Unknown]
  - Pulmonary arterial hypertension [Unknown]
